FAERS Safety Report 10394039 (Version 1)
Quarter: 2014Q3

REPORT INFORMATION
  Report Type: Spontaneous
  Country: ES (occurrence: ES)
  Receive Date: 20140819
  Receipt Date: 20140819
  Transmission Date: 20150326
  Serious: Yes (Other)
  Sender: FDA-Public Use
  Company Number: ES-PFIZER INC-2014230163

PATIENT
  Age: 48 Year
  Sex: Male

DRUGS (3)
  1. METHADONE [Suspect]
     Active Substance: METHADONE HYDROCHLORIDE
     Dosage: 65 MG, ONCE A DAY
     Route: 048
     Dates: start: 20041122
  2. TRANKIMAZIN [Suspect]
     Active Substance: ALPRAZOLAM
     Dosage: UNK
     Route: 048
     Dates: start: 20031122
  3. FLUOXETINE [Suspect]
     Active Substance: FLUOXETINE\FLUOXETINE HYDROCHLORIDE
     Indication: DEPRESSION
     Dosage: 60 MG, DAILY
     Route: 048
     Dates: start: 20050103, end: 201405

REACTIONS (7)
  - Constipation [Recovered/Resolved with Sequelae]
  - Medication error [Unknown]
  - Fatigue [Unknown]
  - Pain [Unknown]
  - Depressed mood [Unknown]
  - Haematochezia [Unknown]
  - Petechiae [Unknown]

NARRATIVE: CASE EVENT DATE: 2005
